FAERS Safety Report 8495797-8 (Version None)
Quarter: 2012Q3

REPORT INFORMATION
  Report Type: 
  Country: None (occurrence: None)
  Receive Date: 20120709
  Receipt Date: 20120703
  Transmission Date: 20120928
  Serious: Yes (Other)
  Sender: FDA-Public Use
  Company Number: US-ROCHE-784183

PATIENT
  Sex: Female
  Weight: 52.21 kg

DRUGS (11)
  1. ORTHO EVRA [Concomitant]
  2. PHENERGAN HCL [Concomitant]
  3. ESTROSTEP [Concomitant]
  4. ORTHO TRI-CYCLEN [Concomitant]
  5. SPRINTEC [Concomitant]
  6. ACCUTANE [Suspect]
     Route: 065
     Dates: start: 20020701, end: 20030101
  7. TORADOL [Concomitant]
  8. BENTYL [Concomitant]
  9. ACCUTANE [Suspect]
     Indication: PRODUCT USED FOR UNKNOWN INDICATION
     Route: 065
     Dates: start: 20010701, end: 20020101
  10. JOLESSA [Concomitant]
  11. TRIVORA-21 [Concomitant]

REACTIONS (5)
  - IRRITABLE BOWEL SYNDROME [None]
  - STRESS [None]
  - INFLAMMATORY BOWEL DISEASE [None]
  - CROHN'S DISEASE [None]
  - INTESTINAL OBSTRUCTION [None]
